FAERS Safety Report 8774758 (Version 2)
Quarter: 2012Q4

REPORT INFORMATION
  Report Type: 
  Country: US (occurrence: US)
  Receive Date: 20120910
  Receipt Date: 20121023
  Transmission Date: 20130627
  Serious: Yes (Hospitalization, Disabling)
  Sender: FDA-Public Use
  Company Number: US-SANOFI-AVENTIS-2012SA063173

PATIENT
  Age: 66 Year
  Sex: Female
  Weight: 165.1 kg

DRUGS (24)
  1. LANTUS [Suspect]
     Indication: TYPE II DIABETES MELLITUS
     Dosage: Dose:25 unit(s)
     Route: 058
     Dates: start: 201111
  2. MORPHINE [Concomitant]
     Dosage: morhpine pump
     Route: 037
  3. ASA [Concomitant]
     Route: 065
  4. FOLIC ACID [Concomitant]
     Route: 065
  5. FUROSEMIDE [Concomitant]
     Dosage: dose of 40mg in AM and 20mg at 2pm
     Route: 065
  6. MOBIC [Concomitant]
     Route: 065
  7. METOPROLOL [Concomitant]
     Route: 065
  8. TIZANIDINE [Concomitant]
     Route: 065
  9. LIPITOR /UNK/ [Concomitant]
     Route: 065
  10. METHOTREXATE [Concomitant]
     Dosage: dose of six 2.5 tabs every Monday
     Route: 065
  11. CALCITONIN, SALMON [Concomitant]
     Dosage: spray alternate nostrils daily
     Route: 045
  12. TRAZODONE [Concomitant]
     Route: 065
  13. LISINOPRIL [Concomitant]
     Route: 065
  14. PRILOSEC [Concomitant]
     Route: 065
  15. VITAMIN B6 [Concomitant]
     Route: 065
  16. VITAMIN C [Concomitant]
     Route: 065
  17. VITAMIN D [Concomitant]
     Dosage: Dose:1200 unit(s)
     Route: 065
  18. SENOKOT /UNK/ [Concomitant]
     Route: 065
  19. STOOL SOFTENER [Concomitant]
     Route: 065
  20. TEMAZEPAM [Concomitant]
     Route: 065
  21. ADVIL [Concomitant]
     Route: 065
  22. GAVISCON [Concomitant]
     Indication: ANTACID THERAPY
     Route: 065
  23. MAALOX [Concomitant]
     Indication: ANTACID THERAPY
     Route: 065
  24. LIDODERM [Concomitant]
     Dosage: 1-3 patches daily PRN
     Route: 062

REACTIONS (1)
  - Sepsis [Unknown]
